FAERS Safety Report 23420716 (Version 1)
Quarter: 2024Q1

REPORT INFORMATION
  Report Type: Spontaneous
  Country: CN (occurrence: CN)
  Receive Date: 20240119
  Receipt Date: 20240119
  Transmission Date: 20240410
  Serious: Yes (Other)
  Sender: FDA-Public Use
  Company Number: CN-SUN PHARMACEUTICAL INDUSTRIES LTD-2024R1-426999

PATIENT
  Age: 87 Year
  Sex: Female
  Weight: 65 kg

DRUGS (5)
  1. AMIODARONE [Suspect]
     Active Substance: AMIODARONE
     Indication: Atrial fibrillation
     Dosage: 0.2 GRAM, QD
     Route: 048
     Dates: start: 20230903, end: 20230907
  2. AMIODARONE [Suspect]
     Active Substance: AMIODARONE
     Dosage: 0.2 GRAM, QOD
     Route: 048
     Dates: start: 20230907
  3. AMIODARONE [Suspect]
     Active Substance: AMIODARONE
     Dosage: 0.1 GRAM, QOD
     Route: 048
     Dates: start: 20230912
  4. LEVOFLOXACIN [Suspect]
     Active Substance: LEVOFLOXACIN
     Indication: Pneumonia
     Dosage: 0.5 GRAM, QD
     Route: 042
     Dates: start: 20230903, end: 20230907
  5. SODIUM CHLORIDE [Suspect]
     Active Substance: SODIUM CHLORIDE
     Indication: Pneumonia
     Dosage: UNK
     Route: 065
     Dates: start: 20230903, end: 20230907

REACTIONS (2)
  - Electrocardiogram QT prolonged [Recovering/Resolving]
  - Sinus arrhythmia [Recovering/Resolving]

NARRATIVE: CASE EVENT DATE: 20230907
